FAERS Safety Report 23473472 (Version 3)
Quarter: 2024Q3

REPORT INFORMATION
  Report Type: Report from Study
  Country: FR (occurrence: FR)
  Receive Date: 20240203
  Receipt Date: 20240918
  Transmission Date: 20241016
  Serious: Yes (Hospitalization)
  Sender: IPSEN
  Company Number: FR-IPSEN Group, Research and Development-2023-21299

PATIENT
  Age: 10 Year
  Sex: Female
  Weight: 24.45 kg

DRUGS (11)
  1. INCRELEX [Suspect]
     Active Substance: MECASERMIN
     Indication: Primary insulin like growth factor-1 deficiency
     Dosage: BID
     Route: 058
     Dates: start: 20190527, end: 20190605
  2. INCRELEX [Suspect]
     Active Substance: MECASERMIN
     Indication: Off label use
     Dosage: BID
     Route: 058
     Dates: start: 20190605, end: 20190615
  3. INCRELEX [Suspect]
     Active Substance: MECASERMIN
     Dosage: BID
     Route: 058
     Dates: start: 20190615, end: 20191022
  4. INCRELEX [Suspect]
     Active Substance: MECASERMIN
     Dosage: BID
     Route: 058
     Dates: start: 20191218, end: 20191228
  5. INCRELEX [Suspect]
     Active Substance: MECASERMIN
     Dosage: BID
     Route: 058
     Dates: start: 20191228, end: 202005
  6. INCRELEX [Suspect]
     Active Substance: MECASERMIN
     Dosage: BID
     Route: 058
     Dates: start: 20200617, end: 20200627
  7. INCRELEX [Suspect]
     Active Substance: MECASERMIN
     Dosage: BID
     Route: 058
     Dates: start: 20200627, end: 20200708
  8. INCRELEX [Suspect]
     Active Substance: MECASERMIN
     Dosage: BID
     Route: 058
     Dates: start: 202011, end: 202104
  9. INCRELEX [Suspect]
     Active Substance: MECASERMIN
     Dosage: BID
     Route: 058
     Dates: start: 202104, end: 20210820
  10. INCRELEX [Suspect]
     Active Substance: MECASERMIN
     Dosage: BID
     Route: 058
     Dates: start: 20210820, end: 20220712
  11. INCRELEX [Suspect]
     Active Substance: MECASERMIN
     Dosage: BID
     Route: 058
     Dates: start: 20220712, end: 202303

REACTIONS (4)
  - Tachycardia [Recovered/Resolved]
  - Off label use [Unknown]
  - Alopecia [Not Recovered/Not Resolved]
  - Intentional overdose [Unknown]

NARRATIVE: CASE EVENT DATE: 20190527
